FAERS Safety Report 5137690-4 (Version None)
Quarter: 2006Q4

REPORT INFORMATION
  Report Type: 
  Country: None (occurrence: None)
  Receive Date: 20061030
  Receipt Date: 20051215
  Transmission Date: 20070319
  Serious: No
  Sender: FDA-Public Use
  Company Number: US-GLAXOSMITHKLINE-A0585998A

PATIENT
  Sex: Male

DRUGS (8)
  1. ADVAIR HFA [Suspect]
     Indication: ASTHMA
     Dosage: 1PUFF TWICE PER DAY
     Route: 055
  2. SIMVASTATIN [Concomitant]
  3. OMEPRAZOLE [Concomitant]
  4. RANITIDINE [Concomitant]
  5. DILANTIN [Concomitant]
  6. POTASSIUM ACETATE [Concomitant]
  7. GABAPENTIN [Concomitant]
  8. ALTACE [Concomitant]

REACTIONS (1)
  - ORAL DISCOMFORT [None]
